FAERS Safety Report 4390977-5 (Version None)
Quarter: 2004Q2

REPORT INFORMATION
  Report Type: 
  Country: None (occurrence: None)
  Receive Date: 20040621
  Receipt Date: 20031028
  Transmission Date: 20050107
  Serious: Yes (Other)
  Sender: FDA-Public Use
  Company Number: USA-2003-0010541

PATIENT
  Age: 58 Year
  Sex: Male

DRUGS (5)
  1. OXYCONTIN [Suspect]
  2. . [Concomitant]
  3. HYDROCODONE BITARTRATE [Suspect]
  4. METHADONE HCL [Suspect]
  5. XANAX [Suspect]

REACTIONS (1)
  - DRUG ABUSER [None]
